FAERS Safety Report 19149580 (Version 1)
Quarter: 2021Q2

REPORT INFORMATION
  Report Type: Spontaneous
  Country: CA (occurrence: CA)
  Receive Date: 20210416
  Receipt Date: 20210416
  Transmission Date: 20210717
  Serious: Yes (Hospitalization, Other)
  Sender: FDA-Public Use
  Company Number: CA-SAMSUNG BIOEPIS-SB-2021-09003

PATIENT
  Age: 57 Year
  Sex: Female
  Weight: 66 kg

DRUGS (27)
  1. METHOTREXATE. [Suspect]
     Active Substance: METHOTREXATE
     Indication: PRODUCT USED FOR UNKNOWN INDICATION
     Dosage: UNKNOWN
     Route: 065
  2. VANCOMYCIN HYDROCHLORIDE. [Suspect]
     Active Substance: VANCOMYCIN HYDROCHLORIDE
     Indication: PRODUCT USED FOR UNKNOWN INDICATION
     Dosage: UNKNOWN
     Route: 065
  3. OXYCODONE HYDROCHLORIDE. [Suspect]
     Active Substance: OXYCODONE HYDROCHLORIDE
     Indication: PAIN
     Route: 048
  4. DIPHENHYDRAMINE. [Suspect]
     Active Substance: DIPHENHYDRAMINE
     Indication: PRODUCT USED FOR UNKNOWN INDICATION
     Dosage: UNKNOWN
     Route: 065
  5. FLORASTOR [Concomitant]
     Active Substance: SACCHAROMYCES CEREVISIAE
     Indication: PRODUCT USED FOR UNKNOWN INDICATION
     Dosage: UNKNOWN
     Route: 065
  6. AZITHROMYCIN ANHYDROUS. [Suspect]
     Active Substance: AZITHROMYCIN ANHYDROUS
     Indication: PRODUCT USED FOR UNKNOWN INDICATION
     Dosage: UNKNOWN
     Route: 065
  7. DILAUDID [Concomitant]
     Active Substance: HYDROMORPHONE HYDROCHLORIDE
     Indication: PRODUCT USED FOR UNKNOWN INDICATION
     Dosage: UNKNOWN
     Route: 065
  8. PEPPERMINT OIL [Concomitant]
     Active Substance: PEPPERMINT OIL
     Indication: PRODUCT USED FOR UNKNOWN INDICATION
     Dosage: UNKNOWN
     Route: 065
  9. FOLIC ACID. [Suspect]
     Active Substance: FOLIC ACID
     Indication: PRODUCT USED FOR UNKNOWN INDICATION
     Dosage: UNKNOWN
     Route: 065
  10. FOLIC ACID. [Suspect]
     Active Substance: FOLIC ACID
     Route: 065
  11. LIDOCAINE. [Suspect]
     Active Substance: LIDOCAINE
     Indication: PRODUCT USED FOR UNKNOWN INDICATION
     Dosage: UNKNOWN, OINTMENT TOPICAL
     Route: 065
  12. APO?METHOTREXATE [Suspect]
     Active Substance: METHOTREXATE
     Indication: PRODUCT USED FOR UNKNOWN INDICATION
     Route: 048
  13. VITAMIN B12 [Suspect]
     Active Substance: CYANOCOBALAMIN
     Dosage: UNKNOWN
     Route: 065
  14. INFLIXIMAB [Suspect]
     Active Substance: INFLIXIMAB
     Indication: CROHN^S DISEASE
     Dosage: UNKNOWN
     Route: 042
  15. APO?METHOTREXATE [Suspect]
     Active Substance: METHOTREXATE
     Route: 048
  16. CIPROFLOXACIN. [Suspect]
     Active Substance: CIPROFLOXACIN
     Indication: PRODUCT USED FOR UNKNOWN INDICATION
     Route: 048
  17. HYDROCORTISONE. [Suspect]
     Active Substance: HYDROCORTISONE
     Indication: PRODUCT USED FOR UNKNOWN INDICATION
     Dosage: UNKNOWN
     Route: 065
  18. METHOTREXATE. [Suspect]
     Active Substance: METHOTREXATE
     Route: 048
  19. NAPROXEN. [Suspect]
     Active Substance: NAPROXEN
     Indication: PAIN
     Route: 048
  20. OXYCODONE [Suspect]
     Active Substance: OXYCODONE
     Indication: PAIN
     Dosage: UNKNOWN
     Route: 048
  21. PENTASA [Suspect]
     Active Substance: MESALAMINE
     Indication: PRODUCT USED FOR UNKNOWN INDICATION
     Dosage: UNKNOWN
     Route: 048
  22. FOLIC ACID. [Suspect]
     Active Substance: FOLIC ACID
     Dosage: UNKNOWN
     Route: 065
  23. METRONIDAZOLE BENZOATE [Suspect]
     Active Substance: METRONIDAZOLE BENZOATE
     Indication: PRODUCT USED FOR UNKNOWN INDICATION
     Route: 048
  24. NYSTATIN. [Suspect]
     Active Substance: NYSTATIN
     Indication: PRODUCT USED FOR UNKNOWN INDICATION
     Route: 048
  25. VITAMIN B12 [Suspect]
     Active Substance: CYANOCOBALAMIN
     Indication: PRODUCT USED FOR UNKNOWN INDICATION
     Dosage: UNKNOWN
     Route: 065
  26. COLESTID [Suspect]
     Active Substance: COLESTIPOL HYDROCHLORIDE
     Indication: PRODUCT USED FOR UNKNOWN INDICATION
     Dosage: UNKNOWN
     Route: 065
  27. DIPHENHYDRAMINE. [Suspect]
     Active Substance: DIPHENHYDRAMINE
     Dosage: UNKNOWN
     Route: 042

REACTIONS (93)
  - Blood triglycerides increased [Unknown]
  - Nausea [Unknown]
  - Nerve compression [Unknown]
  - Procedural anxiety [Unknown]
  - Rectal haemorrhage [Not Recovered/Not Resolved]
  - Rectal ulcer [Not Recovered/Not Resolved]
  - Red blood cell sedimentation rate increased [Unknown]
  - Vaginal infection [Unknown]
  - Arthritis [Unknown]
  - Irritable bowel syndrome [Unknown]
  - Abdominal discomfort [Unknown]
  - Abdominal pain [Not Recovered/Not Resolved]
  - Female genital tract fistula [Unknown]
  - Flatulence [Unknown]
  - Hydronephrosis [Not Recovered/Not Resolved]
  - Pharyngitis [Unknown]
  - Post procedural haemorrhage [Not Recovered/Not Resolved]
  - Productive cough [Unknown]
  - Respiratory tract congestion [Unknown]
  - Sinusitis [Unknown]
  - Anal fistula [Not Recovered/Not Resolved]
  - Anxiety [Unknown]
  - Blood pressure systolic increased [Unknown]
  - Cough [Unknown]
  - Dyspepsia [Unknown]
  - Heart rate decreased [Unknown]
  - Large intestinal ulcer [Unknown]
  - Lower respiratory tract infection [Unknown]
  - Nasopharyngitis [Unknown]
  - Nephrolithiasis [Unknown]
  - Pain [Unknown]
  - Vaginal discharge [Not Recovered/Not Resolved]
  - Vaginal haemorrhage [Not Recovered/Not Resolved]
  - C-reactive protein abnormal [Unknown]
  - Drug level above therapeutic [Not Recovered/Not Resolved]
  - Inappropriate schedule of product administration [Unknown]
  - Aphthous ulcer [Not Recovered/Not Resolved]
  - Cystic fibrosis [Unknown]
  - Incontinence [Unknown]
  - Injury [Unknown]
  - Oropharyngeal pain [Unknown]
  - Stress [Unknown]
  - COVID-19 [Unknown]
  - Fibromyalgia [Unknown]
  - Food allergy [Unknown]
  - Migraine [Unknown]
  - Accessory spleen [Not Recovered/Not Resolved]
  - Alanine aminotransferase increased [Unknown]
  - Anorectal discomfort [Unknown]
  - Blood cholesterol increased [Unknown]
  - Condition aggravated [Not Recovered/Not Resolved]
  - Diverticulum [Unknown]
  - Fear of injection [Unknown]
  - Perineal pain [Not Recovered/Not Resolved]
  - Pneumonia [Unknown]
  - Proctalgia [Unknown]
  - Vulval abscess [Not Recovered/Not Resolved]
  - Vitamin D increased [Unknown]
  - Drug ineffective [Not Recovered/Not Resolved]
  - Intentional product use issue [Unknown]
  - Alopecia [Unknown]
  - C-reactive protein increased [Not Recovered/Not Resolved]
  - Colitis [Not Recovered/Not Resolved]
  - Frequent bowel movements [Unknown]
  - Headache [Unknown]
  - Inflammatory bowel disease [Not Recovered/Not Resolved]
  - Infusion site streaking [Unknown]
  - Malaise [Unknown]
  - Paraesthesia [Unknown]
  - Skin ulcer [Not Recovered/Not Resolved]
  - Therapeutic product effect incomplete [Unknown]
  - Discomfort [Unknown]
  - Haemoglobin increased [Unknown]
  - Haemorrhoids [Unknown]
  - Illness [Not Recovered/Not Resolved]
  - Procedural pain [Not Recovered/Not Resolved]
  - SARS-CoV-2 test positive [Not Recovered/Not Resolved]
  - Urinary tract infection [Unknown]
  - Weight decreased [Unknown]
  - White blood cell disorder [Unknown]
  - Clostridium difficile infection [Unknown]
  - Diarrhoea [Unknown]
  - Fistula [Unknown]
  - Lactose intolerance [Unknown]
  - Back pain [Unknown]
  - Burning sensation [Unknown]
  - Feeling abnormal [Not Recovered/Not Resolved]
  - Haematocrit increased [Unknown]
  - Hepatic cyst [Not Recovered/Not Resolved]
  - Vitamin D decreased [Not Recovered/Not Resolved]
  - Vulvovaginal pain [Not Recovered/Not Resolved]
  - Anal skin tags [Unknown]
  - Vaginal abscess [Unknown]
